FAERS Safety Report 10132356 (Version 2)
Quarter: 2014Q2

REPORT INFORMATION
  Report Type: Spontaneous
  Country: US (occurrence: US)
  Receive Date: 20140428
  Receipt Date: 20140505
  Transmission Date: 20141212
  Serious: Yes (Death, Hospitalization, Other)
  Sender: FDA-Public Use
  Company Number: US-B.I. PHARMACEUTICALS,INC./RIDGEFIELD-2014-BI-18431BP

PATIENT
  Sex: Female

DRUGS (1)
  1. PRADAXA [Suspect]
     Indication: PRODUCT USED FOR UNKNOWN INDICATION
     Route: 065

REACTIONS (6)
  - Pneumonia [Fatal]
  - Respiratory failure [Fatal]
  - Haemorrhage [Unknown]
  - Fall [Unknown]
  - Hip fracture [Unknown]
  - Arterial rupture [Unknown]
